FAERS Safety Report 4956220-0 (Version None)
Quarter: 2006Q1

REPORT INFORMATION
  Report Type: 
  Country: None (occurrence: None)
  Receive Date: 20060329
  Receipt Date: 20060320
  Transmission Date: 20060701
  Serious: Yes (Hospitalization)
  Sender: FDA-Public Use
  Company Number: MX-BOEHRINGER INGELHEIM PHARMACEUTICALS, INC.-2006-BP-02845MX

PATIENT
  Sex: Male

DRUGS (5)
  1. SPIRIVA [Suspect]
     Indication: CHRONIC OBSTRUCTIVE PULMONARY DISEASE
     Route: 055
     Dates: start: 20030613, end: 20060313
  2. SALBUTAMOL [Concomitant]
     Indication: CHRONIC OBSTRUCTIVE PULMONARY DISEASE
     Route: 055
     Dates: start: 20031215
  3. TEOLONG [Concomitant]
     Indication: CHRONIC OBSTRUCTIVE PULMONARY DISEASE
     Route: 048
     Dates: start: 20030320
  4. LASILACTON [Concomitant]
     Route: 048
     Dates: start: 20030413
  5. ASPIRIN [Concomitant]
     Route: 048
     Dates: start: 20030413

REACTIONS (4)
  - BENIGN PROSTATIC HYPERPLASIA [None]
  - BLADDER NECK OBSTRUCTION [None]
  - DYSURIA [None]
  - HAEMATURIA [None]
